FAERS Safety Report 6017431-9 (Version None)
Quarter: 2008Q4

REPORT INFORMATION
  Report Type: 
  Country: None (occurrence: None)
  Receive Date: 20081219
  Receipt Date: 20081204
  Transmission Date: 20090506
  Serious: Yes (Disabling, Other)
  Sender: FDA-Public Use
  Company Number: 2008S1021606

PATIENT
  Age: 85 Year
  Sex: Male

DRUGS (10)
  1. SIMVASTATIN [Suspect]
     Indication: DRUG USE FOR UNKNOWN INDICATION
     Dosage: 40 MG; ORAL
     Route: 048
     Dates: end: 20081101
  2. VERAPAMIL (VERAPAMIL) (40 MG) [Suspect]
     Indication: ATRIAL FIBRILLATION
     Dosage: 40 MG; 3 TIMES A DAY; ORAL
     Route: 048
     Dates: start: 20081001
  3. ASPIRIN [Concomitant]
  4. BRIMONIDINE [Concomitant]
  5. ACETAMINOPHEN W/ CODEINE [Concomitant]
  6. FUROSEMIDE [Concomitant]
  7. LISINOPRIL [Concomitant]
  8. QVAR 40 [Concomitant]
  9. ALBUTEROL SULFATE [Concomitant]
  10. ............... [Concomitant]

REACTIONS (3)
  - BLOOD CREATINE PHOSPHOKINASE INCREASED [None]
  - MOVEMENT DISORDER [None]
  - MYOSITIS [None]
